APPROVED DRUG PRODUCT: HYDROCODONE BITARTRATE AND ACETAMINOPHEN
Active Ingredient: ACETAMINOPHEN; HYDROCODONE BITARTRATE
Strength: 300MG;7.5MG
Dosage Form/Route: TABLET;ORAL
Application: A206142 | Product #002
Applicant: NOVEL LABORATORIES INC
Approved: Nov 14, 2016 | RLD: No | RS: No | Type: DISCN